FAERS Safety Report 25590569 (Version 3)
Quarter: 2025Q4

REPORT INFORMATION
  Report Type: Spontaneous
  Country: US (occurrence: US)
  Receive Date: 20250722
  Receipt Date: 20251016
  Transmission Date: 20260117
  Serious: Yes (Other)
  Sender: BAYER HEALTHCARE PHARMACEUTICALS INC.
  Company Number: US-BAYER-2025A095350

PATIENT
  Age: 57 Year
  Sex: Male

DRUGS (11)
  1. JIVI [Suspect]
     Active Substance: DAMOCTOCOG ALFA PEGOL
     Indication: Factor VIII deficiency
     Dosage: STRENGTH: 500 INFUSED : 696 U PRN/3 MAX A WEEK
     Route: 017
     Dates: start: 202305
  2. JIVI [Suspect]
     Active Substance: DAMOCTOCOG ALFA PEGOL
     Indication: Factor VIII deficiency
     Dosage: STRENGTH: 2000 INFUSED : 2000 U PRN/3 MAX A WEEK
     Route: 017
     Dates: start: 202305
  3. JIVI [Suspect]
     Active Substance: DAMOCTOCOG ALFA PEGOL
     Indication: Factor VIII deficiency
     Dosage: 1 DF
     Route: 017
     Dates: start: 20250628
  4. JIVI [Suspect]
     Active Substance: DAMOCTOCOG ALFA PEGOL
     Indication: Factor VIII deficiency
     Dosage: 2 DF, AS NEEDED
     Route: 042
  5. JIVI [Suspect]
     Active Substance: DAMOCTOCOG ALFA PEGOL
     Indication: Factor VIII deficiency
     Dosage: 2 DF, UNKNOWN IF BLEED WAS TREATED WITHIN 3 HOURS
     Route: 042
     Dates: start: 202509
  6. JIVI [Suspect]
     Active Substance: DAMOCTOCOG ALFA PEGOL
     Indication: Factor VIII deficiency
     Dosage: INFUSE 2696 UNITS (2427-2965) SLOW IV PUSH
     Route: 042
  7. JIVI [Suspect]
     Active Substance: DAMOCTOCOG ALFA PEGOL
     Indication: Factor VIII deficiency
     Dosage: STRENGTH: 500 INFUSED : 2696 U PRN/EVERY OTHER DAY
     Route: 017
     Dates: start: 202406
  8. JIVI [Suspect]
     Active Substance: DAMOCTOCOG ALFA PEGOL
     Indication: Factor VIII deficiency
     Dosage: STRENGTH: 2000 INFUSED :2696 UNITS (2427-2965)
     Route: 017
     Dates: start: 202406
  9. HEMLIBRA [Concomitant]
     Active Substance: EMICIZUMAB-KXWH
     Indication: Prophylaxis
     Dosage: UNK
  10. TRAMADOL [Concomitant]
     Active Substance: TRAMADOL
     Indication: Pain
  11. TYLENOL [Concomitant]
     Active Substance: ACETAMINOPHEN
     Indication: Pain

REACTIONS (3)
  - Haemarthrosis [None]
  - Haemarthrosis [None]
  - Haemorrhage [None]

NARRATIVE: CASE EVENT DATE: 20250628
